FAERS Safety Report 9205751 (Version 1)
Quarter: 2013Q2

REPORT INFORMATION
  Report Type: Spontaneous
  Country: GB (occurrence: None)
  Receive Date: 20130401
  Receipt Date: 20130401
  Transmission Date: 20140414
  Serious: Yes (Hospitalization, Disabling)
  Sender: FDA-Public Use
  Company Number: GB-DEXPHARM-20130122

PATIENT
  Age: 49 Year
  Sex: Female

DRUGS (2)
  1. OMEPRAZOLE [Suspect]
     Indication: ABDOMINAL PAIN
     Route: 048
     Dates: start: 20121227, end: 20130113
  2. ELLESTE-SOLO [Concomitant]

REACTIONS (6)
  - Jaundice cholestatic [None]
  - Cholelithiasis [None]
  - Pruritus [None]
  - Faeces discoloured [None]
  - Chromaturia [None]
  - Liver function test abnormal [None]
